FAERS Safety Report 19980597 (Version 1)
Quarter: 2021Q4

REPORT INFORMATION
  Report Type: Spontaneous
  Country: JP (occurrence: JP)
  Receive Date: 20211021
  Receipt Date: 20211021
  Transmission Date: 20220304
  Serious: Yes (Hospitalization)
  Sender: FDA-Public Use
  Company Number: JP-TEVA-2021-JP-1966433

PATIENT
  Age: 62 Year
  Sex: Male

DRUGS (13)
  1. SPIRONOLACTONE [Suspect]
     Active Substance: SPIRONOLACTONE
     Indication: Cardiac failure chronic
     Dosage: 50 MILLIGRAM DAILY;
     Route: 048
  2. MIDODRINE [Suspect]
     Active Substance: MIDODRINE
     Indication: Cardiac failure chronic
     Dosage: 4 MILLIGRAM DAILY; ON THE 3RD DAY AFTER HOSPITALIZATION
     Route: 048
  3. MIDODRINE [Suspect]
     Active Substance: MIDODRINE
     Dosage: 8 MILLIGRAM DAILY; OVER A 9-DAY PERIOD AFTER THE INITIATION OF MIDODRINE TREATMENT THE DOSE WAS INCR
     Route: 048
  4. AZOSEMIDE [Suspect]
     Active Substance: AZOSEMIDE
     Indication: Cardiac failure chronic
     Dosage: 60 MILLIGRAM DAILY;
     Route: 048
  5. TOLVAPTAN [Suspect]
     Active Substance: TOLVAPTAN
     Indication: Cardiac failure chronic
     Dosage: 15 MILLIGRAM DAILY;
     Route: 048
  6. AMEZINIUM METILSULFATE [Suspect]
     Active Substance: AMEZINIUM METILSULFATE
     Indication: Cardiac failure chronic
     Dosage: 20 MILLIGRAM DAILY; ON THE 25TH DAY FOR FURTHER PRESSOR ACTION; DISCONTINUED ON DAY 29.
     Route: 048
  7. BISOPROLOL [Concomitant]
     Active Substance: BISOPROLOL
     Indication: Cardiac failure chronic
     Dosage: 2.5 MILLIGRAM DAILY;
     Route: 048
  8. ENALAPRIL [Concomitant]
     Active Substance: ENALAPRIL
     Indication: Cardiac failure chronic
     Dosage: 2.5 MILLIGRAM DAILY;
     Route: 048
  9. FUROSEMIDE [Concomitant]
     Active Substance: FUROSEMIDE
     Indication: Urine output decreased
     Dosage: 20 MILLIGRAM DAILY;
     Route: 048
  10. LOSARTAN [Concomitant]
     Active Substance: LOSARTAN
     Indication: Cardiac failure chronic
     Dosage: 25 MILLIGRAM DAILY;
     Route: 048
  11. DOPAMINE [Concomitant]
     Active Substance: DOPAMINE HYDROCHLORIDE
     Indication: Cardiac failure chronic
     Route: 041
  12. Human atrial natriuretic peptide [Concomitant]
     Indication: Cardiac failure chronic
     Route: 041
  13. NOREPINEPHRINE [Concomitant]
     Active Substance: NOREPINEPHRINE
     Indication: Cardiac failure chronic
     Route: 041

REACTIONS (5)
  - Hypotension [Recovered/Resolved]
  - Tachycardia [Unknown]
  - Dizziness [Recovered/Resolved]
  - Urine output decreased [Recovered/Resolved]
  - Drug ineffective [Unknown]
